FAERS Safety Report 7883752-8 (Version None)
Quarter: 2011Q4

REPORT INFORMATION
  Report Type: 
  Country: None (occurrence: None)
  Receive Date: 20111102
  Receipt Date: 20111024
  Transmission Date: 20120403
  Serious: Yes (Hospitalization)
  Sender: FDA-Public Use
  Company Number: JP-ASTRAZENECA-2011SE45739

PATIENT
  Age: 28804 Day
  Sex: Male

DRUGS (19)
  1. PLAVIX [Suspect]
     Indication: ACUTE CORONARY SYNDROME
     Dosage: TWO TIMES A DAY
     Route: 048
     Dates: start: 20110311
  2. OPALMON [Concomitant]
     Indication: LUMBAR SPINAL STENOSIS
     Route: 048
  3. DILTIAZEM HCL [Concomitant]
     Indication: HYPERTENSION
     Route: 048
     Dates: start: 20110311
  4. SIGMART [Concomitant]
     Indication: ANGINA UNSTABLE
     Route: 048
     Dates: start: 20110311
  5. LEVOFLOXACIN [Concomitant]
     Indication: HORDEOLUM
     Route: 047
     Dates: start: 20110426
  6. ASPIRIN [Suspect]
     Indication: ACUTE CORONARY SYNDROME
     Route: 048
     Dates: start: 20110311
  7. UNISIA [Concomitant]
     Indication: HYPERTENSION
     Route: 048
     Dates: start: 20110409
  8. CARTEOLOL HYDROCHLORIDE [Concomitant]
     Indication: HORDEOLUM
     Route: 047
  9. XALATAN [Concomitant]
     Indication: GLAUCOMA
     Route: 047
  10. LIVALO [Concomitant]
     Indication: DYSLIPIDAEMIA
     Route: 048
     Dates: start: 20110311
  11. PLACEBO [Suspect]
     Indication: ACUTE CORONARY SYNDROME
     Dosage: DAILY
     Route: 048
     Dates: start: 20110311
  12. STUDY PROCEDURE [Suspect]
     Indication: ACUTE CORONARY SYNDROME
     Route: 065
  13. CONIEL [Concomitant]
     Indication: HYPERTENSION
     Route: 048
     Dates: start: 20110313
  14. DIOVAN [Concomitant]
     Indication: HYPERTENSION
     Route: 048
     Dates: start: 20110314
  15. COSOPT [Concomitant]
     Indication: GLAUCOMA
     Route: 047
  16. RADEN [Concomitant]
     Indication: GASTRITIS PROPHYLAXIS
     Route: 048
  17. NITROGLYCERIN [Concomitant]
     Indication: ANGINA UNSTABLE
     Dosage: AS REQUIRED
     Route: 048
     Dates: start: 20110320
  18. OFLOXACIN [Concomitant]
     Indication: HORDEOLUM
     Route: 047
     Dates: start: 20110426
  19. DOXAZOSIN MESYLATE [Concomitant]
     Indication: HYPERTENSION
     Route: 048
     Dates: start: 20110614

REACTIONS (1)
  - IN-STENT CORONARY ARTERY RESTENOSIS [None]
